FAERS Safety Report 25473351 (Version 2)
Quarter: 2025Q2

REPORT INFORMATION
  Report Type: Spontaneous
  Country: TN (occurrence: TN)
  Receive Date: 20250624
  Receipt Date: 20250625
  Transmission Date: 20250716
  Serious: Yes (Death)
  Sender: PFIZER
  Company Number: TN-PFIZER INC-PV202500074057

PATIENT
  Sex: Female

DRUGS (2)
  1. LORLATINIB [Suspect]
     Active Substance: LORLATINIB
     Indication: Lung carcinoma cell type unspecified stage IV
  2. ALECTINIB [Suspect]
     Active Substance: ALECTINIB
     Indication: Lung carcinoma cell type unspecified stage IV

REACTIONS (2)
  - Pulmonary embolism [Fatal]
  - Cardiotoxicity [Fatal]

NARRATIVE: CASE EVENT DATE: 20240101
